FAERS Safety Report 4710467-7 (Version None)
Quarter: 2005Q3

REPORT INFORMATION
  Report Type: 
  Country: None (occurrence: None)
  Receive Date: 20050711
  Receipt Date: 20050628
  Transmission Date: 20060218
  Serious: Yes (Other)
  Sender: FDA-Public Use
  Company Number: JP-JNJFOC-20050607646

PATIENT
  Age: 38 Year
  Sex: Female

DRUGS (3)
  1. ITRIZOLE [Suspect]
     Indication: ONYCHOMYCOSIS
     Route: 049
     Dates: start: 20050520, end: 20050526
  2. CLOMIPHENE CITRATE [Concomitant]
     Route: 065
  3. CABERGOLINE [Concomitant]
     Route: 065

REACTIONS (3)
  - ABDOMINAL PAIN LOWER [None]
  - HAEMORRHAGIC OVARIAN CYST [None]
  - HEPATIC FUNCTION ABNORMAL [None]
